FAERS Safety Report 25429374 (Version 1)
Quarter: 2025Q2

REPORT INFORMATION
  Report Type: Spontaneous
  Country: US (occurrence: US)
  Receive Date: 20250612
  Receipt Date: 20250612
  Transmission Date: 20250716
  Serious: No
  Sender: BAYER HEALTHCARE LLC
  Company Number: US-BAYER-2025A075656

PATIENT

DRUGS (5)
  1. CLARITIN [Suspect]
     Active Substance: LORATADINE
     Indication: Urticaria
  2. XOLAIR [Concomitant]
     Active Substance: OMALIZUMAB
     Indication: Urticaria
  3. PEPCID [Concomitant]
     Active Substance: FAMOTIDINE
     Indication: Urticaria
  4. KETOTIFEN [Concomitant]
     Active Substance: KETOTIFEN
     Indication: Urticaria
  5. CROMOLYN SODIUM [Concomitant]
     Active Substance: CROMOLYN SODIUM
     Indication: Urticaria

REACTIONS (1)
  - Drug ineffective for unapproved indication [Unknown]
